FAERS Safety Report 25606087 (Version 3)
Quarter: 2025Q3

REPORT INFORMATION
  Report Type: Spontaneous
  Country: EU (occurrence: EU)
  Receive Date: 20250725
  Receipt Date: 20250829
  Transmission Date: 20251021
  Serious: Yes (Death, Life-Threatening, Hospitalization, Other)
  Sender: SUNOVION
  Company Number: EU-Accord-495628

PATIENT
  Age: 72 Year
  Sex: Male

DRUGS (11)
  1. RELUGOLIX [Interacting]
     Active Substance: RELUGOLIX
     Indication: Hormone-refractory prostate cancer
     Dosage: 120 MG QD
     Route: 048
  2. RELUGOLIX [Interacting]
     Active Substance: RELUGOLIX
     Indication: Prostate cancer metastatic
  3. RELUGOLIX [Interacting]
     Active Substance: RELUGOLIX
     Indication: Prostate cancer
  4. ROSUVASTATIN CALCIUM [Interacting]
     Active Substance: ROSUVASTATIN CALCIUM
     Indication: Product used for unknown indication
     Dosage: 40 MG, QD
  5. ABIRATERONE [Interacting]
     Active Substance: ABIRATERONE
     Indication: Hormone-refractory prostate cancer
     Dosage: 1000 MG, QD
  6. ABIRATERONE [Interacting]
     Active Substance: ABIRATERONE
     Indication: Prostate cancer metastatic
  7. ABIRATERONE [Interacting]
     Active Substance: ABIRATERONE
     Indication: Prostate cancer
  8. BISOPROLOL [Concomitant]
     Active Substance: BISOPROLOL
     Dosage: 10 MG, QD
  9. HYDROMORPHONE HYDROCHLORIDE [Concomitant]
     Active Substance: HYDROMORPHONE HYDROCHLORIDE
     Dosage: 20 MG, QD
  10. PANTOPRAZOLE [Concomitant]
     Active Substance: PANTOPRAZOLE
     Dosage: 20 MG, QD
  11. PREGABALIN [Concomitant]
     Active Substance: PREGABALIN
     Dosage: 150 MG, QD

REACTIONS (2)
  - Nephropathy toxic [Fatal]
  - Drug interaction [Fatal]
